FAERS Safety Report 23343576 (Version 4)
Quarter: 2025Q1

REPORT INFORMATION
  Report Type: Spontaneous
  Country: US (occurrence: US)
  Receive Date: 20231227
  Receipt Date: 20250217
  Transmission Date: 20250409
  Serious: Yes (Other)
  Sender: PFIZER
  Company Number: US-PFIZER INC-202300452952

PATIENT
  Age: 58 Year
  Sex: Female

DRUGS (12)
  1. XELJANZ [Suspect]
     Active Substance: TOFACITINIB CITRATE
     Dosage: 5 MG, 2X/DAY
     Route: 048
  2. XELJANZ [Suspect]
     Active Substance: TOFACITINIB CITRATE
     Dosage: 5 MG ORAL TWICE DAILY
     Route: 048
     Dates: end: 202401
  3. XELJANZ [Suspect]
     Active Substance: TOFACITINIB CITRATE
     Dosage: 5 MG PER DAY ORALLY
     Route: 048
  4. XELJANZ [Suspect]
     Active Substance: TOFACITINIB CITRATE
     Dosage: 5 MG, 2X/DAY
  5. INFLUENZA VIRUS VACCINE [Concomitant]
     Active Substance: INFLUENZA VIRUS VACCINE
     Indication: Immunisation
     Dates: start: 20241001, end: 20241001
  6. OLMESARTAN MEDOXOMIL [Concomitant]
     Active Substance: OLMESARTAN MEDOXOMIL
  7. PANTOPRAZOLE SODIUM [Concomitant]
     Active Substance: PANTOPRAZOLE SODIUM
  8. ADVIL [Concomitant]
     Active Substance: IBUPROFEN
  9. HYDROCHLOROTHIAZIDE [Concomitant]
     Active Substance: HYDROCHLOROTHIAZIDE
  10. ROSUVASTATIN CALCIUM [Concomitant]
     Active Substance: ROSUVASTATIN CALCIUM
  11. DAILY VITE [ASCORBIC ACID;CALCIUM PANTOTHENATE;COLECALCIFEROL;CYANOCOB [Concomitant]
  12. ZINC [Concomitant]
     Active Substance: ZINC

REACTIONS (14)
  - Deafness unilateral [Recovering/Resolving]
  - COVID-19 [Unknown]
  - Stomatitis [Recovering/Resolving]
  - Streptococcal infection [Unknown]
  - Muscle spasms [Unknown]
  - Condition aggravated [Unknown]
  - Irritable bowel syndrome [Unknown]
  - Disease recurrence [Unknown]
  - Fatigue [Recovering/Resolving]
  - Oral infection [Unknown]
  - Influenza [Recovering/Resolving]
  - Upper respiratory tract infection [Recovered/Resolved]
  - Blood cholesterol increased [Not Recovered/Not Resolved]
  - Off label use [Unknown]

NARRATIVE: CASE EVENT DATE: 20220101
